FAERS Safety Report 4710712-8 (Version None)
Quarter: 2005Q3

REPORT INFORMATION
  Report Type: 
  Country: None (occurrence: None)
  Receive Date: 20050707
  Receipt Date: 20050622
  Transmission Date: 20060218
  Serious: No
  Sender: FDA-Public Use
  Company Number: 11682

PATIENT
  Age: 4 Year
  Sex: Male

DRUGS (5)
  1. VINCRISTINE [Suspect]
     Indication: ACUTE LYMPHOCYTIC LEUKAEMIA
     Dosage: 1.1 MG PER CYCLE
     Route: 042
  2. METHOTREXATE [Concomitant]
  3. HYDROCORTISONE [Concomitant]
  4. CYTARABINE [Concomitant]
  5. PREDNISOLONE [Concomitant]

REACTIONS (2)
  - CONSTIPATION [None]
  - NEUROGENIC BLADDER [None]
